FAERS Safety Report 14375238 (Version 1)
Quarter: 2018Q1

REPORT INFORMATION
  Report Type: Spontaneous
  Country: US (occurrence: US)
  Receive Date: 20180110
  Receipt Date: 20180110
  Transmission Date: 20180509
  Serious: Yes (Other)
  Sender: FDA-Public Use
  Company Number: None

PATIENT
  Age: 72 Year
  Sex: Female
  Weight: 81.4 kg

DRUGS (1)
  1. VARUBI [Suspect]
     Active Substance: ROLAPITANT

REACTIONS (12)
  - Flushing [None]
  - Chest discomfort [None]
  - Retching [None]
  - Vomiting [None]
  - Hyperhidrosis [None]
  - Coccydynia [None]
  - Productive cough [None]
  - Heart rate increased [None]
  - Blood pressure increased [None]
  - Blood pressure diastolic decreased [None]
  - Oxygen saturation decreased [None]
  - Fatigue [None]

NARRATIVE: CASE EVENT DATE: 20180109
